FAERS Safety Report 5635503-5 (Version None)
Quarter: 2008Q1

REPORT INFORMATION
  Report Type: 
  Country: None (occurrence: None)
  Receive Date: 20080131
  Receipt Date: 20071203
  Transmission Date: 20080703
  Serious: No
  Sender: FDA-Public Use
  Company Number: US200712000349

PATIENT
  Age: 71 Year
  Sex: Male
  Weight: 126.5 kg

DRUGS (3)
  1. BYETTA [Suspect]
     Indication: TYPE 2 DIABETES MELLITUS
     Dosage: 5 UG, DAILY (1/D), SUBCUTANEOUS
     Route: 058
     Dates: start: 20070901
  2. EXENATIDE (EXENATIDE PEN) [Concomitant]
  3. PLAVIX [Concomitant]

REACTIONS (1)
  - CAROTID ARTERY OCCLUSION [None]
